FAERS Safety Report 5515219-6 (Version None)
Quarter: 2007Q4

REPORT INFORMATION
  Report Type: 
  Country: None (occurrence: None)
  Receive Date: 20071109
  Receipt Date: 20071103
  Transmission Date: 20080405
  Serious: Yes (Other)
  Sender: FDA-Public Use
  Company Number: CHPA2007US11724

PATIENT
  Age: 72 Year
  Sex: Male

DRUGS (2)
  1. EX-LAX REG STR CHOCOLATED LAX PCS SEN (NCH)(SENNA GLYCOSIDES (CA SALTS [Suspect]
     Indication: CONSTIPATION
     Dosage: ON AND OFF FOR MANY DAYS, ORAL; 30 MG, QHS, ORAL
     Route: 048
     Dates: start: 20071021
  2. CITALOPRAM HYDROBROMIDE [Concomitant]

REACTIONS (2)
  - DRUG DEPENDENCE [None]
  - INTENTIONAL DRUG MISUSE [None]
